FAERS Safety Report 4891251-0 (Version None)
Quarter: 2006Q1

REPORT INFORMATION
  Report Type: 
  Country: None (occurrence: None)
  Receive Date: 20060125
  Receipt Date: 20051205
  Transmission Date: 20060701
  Serious: Yes (Other)
  Sender: FDA-Public Use
  Company Number: US-ROCHE-428155

PATIENT
  Age: 81 Year
  Sex: Female
  Weight: 52.6 kg

DRUGS (6)
  1. BONIVA [Suspect]
     Indication: OSTEOPOROSIS
     Route: 048
     Dates: start: 20050515, end: 20051115
  2. BONIVA [Suspect]
     Route: 048
  3. METAMUCIL [Concomitant]
  4. NEXIUM [Concomitant]
     Route: 048
  5. PLAVIX [Concomitant]
  6. COUMADIN [Concomitant]

REACTIONS (3)
  - GASTROINTESTINAL DISORDER [None]
  - GASTROOESOPHAGEAL REFLUX DISEASE [None]
  - PAIN IN EXTREMITY [None]
